FAERS Safety Report 22095916 (Version 2)
Quarter: 2025Q2

REPORT INFORMATION
  Report Type: Spontaneous
  Country: US (occurrence: None)
  Receive Date: 20230315
  Receipt Date: 20250515
  Transmission Date: 20250717
  Serious: Yes (Other)
  Sender: INCYTE
  Company Number: US-INCYTE CORPORATION-2023IN002480

PATIENT

DRUGS (1)
  1. JAKAFI [Suspect]
     Active Substance: RUXOLITINIB
     Indication: Polycythaemia vera
     Dosage: 10 MILLIGRAM, BID

REACTIONS (8)
  - Neuropathy peripheral [Unknown]
  - Fatigue [Recovering/Resolving]
  - Decreased activity [Unknown]
  - Faeces hard [Unknown]
  - Anorectal discomfort [Unknown]
  - Dyschezia [Unknown]
  - Pain [Unknown]
  - Constipation [Unknown]
